FAERS Safety Report 22882170 (Version 3)
Quarter: 2023Q4

REPORT INFORMATION
  Report Type: Spontaneous
  Country: US (occurrence: US)
  Receive Date: 20230830
  Receipt Date: 20231220
  Transmission Date: 20240110
  Serious: Yes (Other)
  Sender: FDA-Public Use
  Company Number: US-PFIZER INC-PV202300147144

PATIENT
  Age: 66 Year
  Sex: Female
  Weight: 54.059 kg

DRUGS (4)
  1. IBRANCE [Suspect]
     Active Substance: PALBOCICLIB
     Indication: Breast cancer metastatic
     Dosage: TAKE ON DAYS 1-21 OF A 28-DAY CYCLE TAKE WITH OR WITHOUT FOOD
     Route: 048
     Dates: start: 201811
  2. LETROZOLE [Concomitant]
     Active Substance: LETROZOLE
     Dosage: UNK
     Dates: start: 201811
  3. ERGOCALCIFEROL [Concomitant]
     Active Substance: ERGOCALCIFEROL
     Dosage: UNK
  4. ZOMETA [Concomitant]
     Active Substance: ZOLEDRONIC ACID
     Dosage: INFUSION

REACTIONS (2)
  - Neutropenia [Unknown]
  - Neuropathy peripheral [Unknown]
